FAERS Safety Report 22329660 (Version 1)
Quarter: 2023Q2

REPORT INFORMATION
  Report Type: Spontaneous
  Country: US (occurrence: None)
  Receive Date: 20230517
  Receipt Date: 20230517
  Transmission Date: 20230722
  Serious: No
  Sender: FDA-Public Use
  Company Number: US-ROCHE-3144694

PATIENT
  Sex: Female

DRUGS (2)
  1. ACTEMRA [Suspect]
     Active Substance: TOCILIZUMAB
     Indication: Product used for unknown indication
     Route: 065
     Dates: end: 202207
  2. RINVOQ [Concomitant]
     Active Substance: UPADACITINIB
     Indication: Rheumatoid arthritis
     Route: 048

REACTIONS (8)
  - Drug ineffective [Unknown]
  - Abnormal dreams [Unknown]
  - Balance disorder [Unknown]
  - Asthenia [Unknown]
  - Tremor [Unknown]
  - Joint range of motion decreased [Unknown]
  - Psychotic disorder [Unknown]
  - Hypersomnia [Unknown]
